FAERS Safety Report 5202071-1 (Version None)
Quarter: 2007Q1

REPORT INFORMATION
  Report Type: 
  Country: None (occurrence: None)
  Receive Date: 20070103
  Receipt Date: 20061220
  Transmission Date: 20070707
  Serious: Yes (Other)
  Sender: FDA-Public Use
  Company Number: CAWYE910120DEC06

PATIENT
  Age: 63 Year
  Sex: Female

DRUGS (1)
  1. EFFEXOR XR [Suspect]
     Dosage: 75 MG OD
     Route: 048
     Dates: start: 20060201

REACTIONS (5)
  - FACE OEDEMA [None]
  - HOT FLUSH [None]
  - HYPERHIDROSIS [None]
  - ROSACEA [None]
  - SYSTEMIC LUPUS ERYTHEMATOSUS [None]
